FAERS Safety Report 17128392 (Version 5)
Quarter: 2021Q3

REPORT INFORMATION
  Report Type: Spontaneous
  Country: PL (occurrence: PL)
  Receive Date: 20191209
  Receipt Date: 20210802
  Transmission Date: 20211014
  Serious: Yes (Hospitalization, Other)
  Sender: FDA-Public Use
  Company Number: NVSC2019PL059928

PATIENT
  Age: 37 Year
  Sex: Female

DRUGS (2)
  1. IBUPROFEN. [Suspect]
     Active Substance: IBUPROFEN
     Indication: PRODUCT USED FOR UNKNOWN INDICATION
     Dosage: UNK
     Route: 048
  2. ROSUVASTATIN. [Suspect]
     Active Substance: ROSUVASTATIN
     Indication: PRODUCT USED FOR UNKNOWN INDICATION
     Dosage: UNK
     Route: 048

REACTIONS (9)
  - Body mass index decreased [Unknown]
  - Transaminases increased [Unknown]
  - Laboratory test abnormal [Unknown]
  - Oligohydramnios [Recovered/Resolved]
  - Total bile acids increased [Unknown]
  - Fatigue [Unknown]
  - Exposure during pregnancy [Unknown]
  - Anaemia [Unknown]
  - Jaundice [Unknown]
